FAERS Safety Report 8559609 (Version 3)
Quarter: 2013Q2

REPORT INFORMATION
  Report Type: Spontaneous
  Country: US (occurrence: US)
  Receive Date: 20120514
  Receipt Date: 20130415
  Transmission Date: 20140414
  Serious: Yes (Other)
  Sender: FDA-Public Use
  Company Number: US-BAYER-2012-045113

PATIENT
  Age: 20 Year
  Sex: Female
  Weight: 78.46 kg

DRUGS (2)
  1. MIRENA [Suspect]
     Indication: CONTRACEPTION
     Dosage: 20 ?G/D, CONT
     Route: 015
     Dates: start: 20110419, end: 20120507
  2. PRENATAL VITAMINS [Concomitant]

REACTIONS (6)
  - Amenorrhoea [None]
  - Vaginal haemorrhage [None]
  - Ovarian cyst [None]
  - Pregnancy with contraceptive device [Recovered/Resolved]
  - Drug ineffective [None]
  - Abortion spontaneous [None]
